FAERS Safety Report 11108202 (Version 2)
Quarter: 2015Q3

REPORT INFORMATION
  Report Type: Spontaneous
  Country: BR (occurrence: BR)
  Receive Date: 20150512
  Receipt Date: 20150819
  Transmission Date: 20151125
  Serious: Yes (Hospitalization)
  Sender: FDA-Public Use
  Company Number: BR-ABBVIE-15P-020-1390056-00

PATIENT
  Age: 39 Year
  Sex: Female
  Weight: 64 kg

DRUGS (2)
  1. DEPAKENE [Suspect]
     Active Substance: VALPROIC ACID
     Indication: POSTPARTUM DEPRESSION
     Dosage: 500MG; AFTER LUNCH
     Route: 048
     Dates: start: 2006, end: 201507
  2. DEPAKENE [Suspect]
     Active Substance: VALPROIC ACID
     Indication: BIPOLAR DISORDER
     Route: 065
     Dates: start: 201507

REACTIONS (17)
  - Vision blurred [Recovered/Resolved]
  - Diplopia [Recovered/Resolved]
  - Headache [Recovered/Resolved]
  - Visual impairment [Recovered/Resolved]
  - Depression [Recovered/Resolved]
  - Faecal incontinence [Recovered/Resolved]
  - Alopecia [Recovered/Resolved]
  - Off label use [Recovered/Resolved]
  - Dysphonia [Recovered/Resolved]
  - Product use issue [Recovered/Resolved]
  - Nausea [Recovered/Resolved]
  - Glossitis [Recovered/Resolved]
  - Irritability [Recovered/Resolved]
  - Musculoskeletal disorder [Recovered/Resolved]
  - Fatigue [Recovered/Resolved]
  - Fatigue [Recovered/Resolved]
  - Speech disorder [Recovered/Resolved]

NARRATIVE: CASE EVENT DATE: 2007
